FAERS Safety Report 11151348 (Version 2)
Quarter: 2015Q2

REPORT INFORMATION
  Report Type: Spontaneous
  Country: FR (occurrence: FR)
  Receive Date: 20150601
  Receipt Date: 20150605
  Transmission Date: 20150821
  Serious: No
  Sender: FDA-Public Use
  Company Number: FR-009507513-1505FRA015782

PATIENT
  Sex: Female

DRUGS (1)
  1. NOROXINE [Suspect]
     Active Substance: NORFLOXACIN
     Dosage: UNK
     Route: 048

REACTIONS (1)
  - Tendonitis [Unknown]
